FAERS Safety Report 5217968-6 (Version None)
Quarter: 2007Q1

REPORT INFORMATION
  Report Type: 
  Country: None (occurrence: None)
  Receive Date: 20070124
  Receipt Date: 20070115
  Transmission Date: 20070707
  Serious: Yes (Other)
  Sender: FDA-Public Use
  Company Number: PHRM2007FR00542

PATIENT
  Age: 58 Year
  Sex: Female

DRUGS (3)
  1. LOZOL [Concomitant]
     Indication: HYPERTENSION
     Dosage: 5 MG, QD
     Route: 048
  2. ABUFENE [Concomitant]
     Indication: MENOPAUSE
     Route: 048
  3. LESCOL [Suspect]
     Indication: HYPERCHOLESTEROLAEMIA
     Dosage: 80 MG, QD
     Route: 048
     Dates: start: 20040101

REACTIONS (2)
  - MUSCLE MASS [None]
  - TENDONITIS [None]
